FAERS Safety Report 5966855-4 (Version None)
Quarter: 2008Q4

REPORT INFORMATION
  Report Type: 
  Country: None (occurrence: None)
  Receive Date: 20081125
  Receipt Date: 20081112
  Transmission Date: 20090506
  Serious: Yes (Hospitalization, Other)
  Sender: FDA-Public Use
  Company Number: CH-GENENTECH-270351

PATIENT
  Sex: Male

DRUGS (6)
  1. BEVACIZUMAB [Suspect]
     Indication: COLORECTAL CANCER
     Dosage: 7.5 MG/KG, UNK
     Route: 065
     Dates: start: 20080630
  2. OXALIPLATIN [Suspect]
     Indication: COLORECTAL CANCER
     Dosage: 70 MG/M2, UNK
     Route: 065
     Dates: start: 20080630
  3. FLUOROURACIL [Suspect]
     Indication: COLORECTAL CANCER
     Dosage: 1500 MG/M2, UNK
     Route: 065
     Dates: start: 20080630
  4. LEUCOVORIN CALCIUM [Suspect]
     Indication: COLORECTAL CANCER
     Dosage: 30 MG, UNK
     Route: 065
     Dates: start: 20080630
  5. CETUXIMAB [Suspect]
     Indication: COLORECTAL CANCER
     Dosage: 250 MG/M2, UNK
     Dates: start: 20080630
  6. IRINOTECAN HYDROCHLORIDE [Suspect]
     Indication: COLORECTAL CANCER
     Dosage: 100 MG/M2, UNK
     Dates: start: 20080708

REACTIONS (5)
  - BLOOD CREATININE INCREASED [None]
  - DEHYDRATION [None]
  - DIARRHOEA [None]
  - HYPOKALAEMIA [None]
  - RENAL FAILURE [None]
